FAERS Safety Report 5690647-7 (Version None)
Quarter: 2008Q2

REPORT INFORMATION
  Report Type: 
  Country: None (occurrence: None)
  Receive Date: 20080401
  Receipt Date: 20080321
  Transmission Date: 20081010
  Serious: Yes (Other)
  Sender: FDA-Public Use
  Company Number: US-JNJFOC-20080306157

PATIENT
  Sex: Female
  Weight: 47.17 kg

DRUGS (5)
  1. DURAGESIC-100 [Suspect]
     Route: 062
  2. DURAGESIC-100 [Suspect]
     Indication: NEUROPATHY PERIPHERAL
     Route: 062
  3. MULTIPLE VITAMIN [Concomitant]
     Indication: NUTRITIONAL SUPPORT
     Route: 048
  4. HUMALOG [Concomitant]
     Indication: DIABETES MELLITUS
     Route: 058
  5. LANTUS [Concomitant]
     Indication: DIABETES MELLITUS
     Route: 058

REACTIONS (5)
  - BLOOD CHOLESTEROL INCREASED [None]
  - CONSTIPATION [None]
  - HYPERTENSION [None]
  - PAIN IN EXTREMITY [None]
  - WRONG TECHNIQUE IN DRUG USAGE PROCESS [None]
